FAERS Safety Report 5603799-1 (Version None)
Quarter: 2008Q1

REPORT INFORMATION
  Report Type: 
  Country: None (occurrence: None)
  Receive Date: 20080122
  Receipt Date: 20080111
  Transmission Date: 20080703
  Serious: Yes (Hospitalization)
  Sender: FDA-Public Use
  Company Number: 2005US001772

PATIENT
  Age: 60 Year
  Sex: Male

DRUGS (11)
  1. PROGRAF [Suspect]
     Indication: RENAL TRANSPLANT
     Dosage: 2 MG, BID, ORAL
     Route: 048
     Dates: start: 20050805
  2. MYCOPHENOLATE MOFETIL [Suspect]
     Indication: PROPHYLAXIS AGAINST TRANSPLANT REJECTION
     Dosage: 500 MG, UID/QD, ORAL
     Route: 048
     Dates: start: 20050805
  3. PREDNISONE TAB [Suspect]
     Indication: PROPHYLAXIS AGAINST TRANSPLANT REJECTION
     Dosage: 20 MG, UID/QD, ORAL
     Route: 048
     Dates: start: 20050805
  4. CLONIDINE [Concomitant]
  5. NORVASC [Concomitant]
  6. LABETALOL HYDROCHLORIDE [Concomitant]
  7. PHOSLO [Concomitant]
  8. MYCELEX [Concomitant]
  9. SODIUM BICARBONATE IN PLASTIC CONTAINER [Concomitant]
  10. VALCYTE [Concomitant]
  11. PROTONIX [Concomitant]

REACTIONS (3)
  - CEREBRAL ARTERY THROMBOSIS [None]
  - CEREBROVASCULAR ACCIDENT [None]
  - TRANSIENT ISCHAEMIC ATTACK [None]
